FAERS Safety Report 13592859 (Version 2)
Quarter: 2018Q2

REPORT INFORMATION
  Report Type: Report from Study
  Country: CN (occurrence: CN)
  Receive Date: 20170530
  Receipt Date: 20180525
  Transmission Date: 20180711
  Serious: Yes (Other)
  Sender: FDA-Public Use
  Company Number: PHHY2017CN078423

PATIENT
  Age: 23 Year
  Sex: Male

DRUGS (24)
  1. BASILIXIMAB [Suspect]
     Active Substance: BASILIXIMAB
     Dosage: 20 MG, QD
     Route: 065
     Dates: start: 20170211, end: 20170211
  2. ALPROSTADIL. [Concomitant]
     Active Substance: ALPROSTADIL
     Indication: POOR PERIPHERAL CIRCULATION
     Dosage: 20 UG, QD
     Route: 042
     Dates: start: 20170209, end: 20170224
  3. PREDNISONE. [Suspect]
     Active Substance: PREDNISONE
     Dosage: 30 MG, QD
     Route: 065
     Dates: start: 20170213, end: 20170213
  4. TACROLIMUS. [Suspect]
     Active Substance: TACROLIMUS
     Indication: IMMUNOSUPPRESSANT DRUG THERAPY
     Dosage: 4 MG, QD
     Route: 065
     Dates: start: 20170211, end: 20170217
  5. CEFOPERAZONE SODIUM AND TAZOBACTAM SODIUM [Concomitant]
     Active Substance: CEFOPERAZONE\TAZOBACTAM SODIUM
     Indication: INFECTION PROPHYLAXIS
     Dosage: 4500 MG, BID
     Route: 042
     Dates: start: 20170209, end: 20170222
  6. AMINO ACID [Concomitant]
     Active Substance: AMINO ACIDS
     Indication: PRODUCT USED FOR UNKNOWN INDICATION
  7. PREDNISONE. [Suspect]
     Active Substance: PREDNISONE
     Dosage: 40 MG, QD
     Route: 065
     Dates: start: 20170212, end: 20170212
  8. PREDNISONE. [Suspect]
     Active Substance: PREDNISONE
     Dosage: 10 MG, QD
     Route: 065
     Dates: start: 20170215, end: 20170215
  9. LANSOPRAZOLE. [Concomitant]
     Active Substance: LANSOPRAZOLE
     Indication: GASTRITIS PROPHYLAXIS
     Dosage: 60 MG, QD
     Route: 042
     Dates: start: 20170209, end: 20170214
  10. MYFORTIC [Suspect]
     Active Substance: MYCOPHENOLATE SODIUM
     Dosage: 1080 MG, QD
     Route: 065
     Dates: start: 20170216, end: 20170307
  11. COENZYME [Concomitant]
     Active Substance: UBIDECARENONE
     Indication: PRODUCT USED FOR UNKNOWN INDICATION
     Dosage: 15 MG, QD
     Route: 042
     Dates: start: 20170209, end: 20170215
  12. METHIONINE [Concomitant]
     Active Substance: METHIONINE
     Indication: PRODUCT USED FOR UNKNOWN INDICATION
     Dosage: 200 MG, QD
     Route: 042
     Dates: start: 20170209, end: 20170215
  13. ACETYLCYSTEINE. [Concomitant]
     Active Substance: ACETYLCYSTEINE
     Indication: PRODUCT USED FOR UNKNOWN INDICATION
     Dosage: 8000 MG, QD
     Route: 042
     Dates: start: 20170209, end: 20170215
  14. MYFORTIC [Suspect]
     Active Substance: MYCOPHENOLATE SODIUM
     Indication: RENAL TRANSPLANT
     Dosage: 1440 MG, QD
     Route: 065
     Dates: start: 20170209, end: 20170215
  15. METHYLPREDNISOLONE. [Suspect]
     Active Substance: METHYLPREDNISOLONE
     Indication: IMMUNOSUPPRESSANT DRUG THERAPY
     Dosage: 500 MG, QD
     Route: 065
     Dates: start: 20170208, end: 20170210
  16. PREDNISONE. [Suspect]
     Active Substance: PREDNISONE
     Dosage: 20 MG, QD
     Route: 065
     Dates: start: 20170214, end: 20170214
  17. TIGECYCLINE. [Concomitant]
     Active Substance: TIGECYCLINE
     Indication: INFECTION PROPHYLAXIS
     Dosage: 50 MG, QD
     Route: 042
     Dates: start: 20170209, end: 20170215
  18. RIBOFLAVIN SODIUM PHOSPHATE [Concomitant]
     Indication: PRODUCT USED FOR UNKNOWN INDICATION
     Dosage: 40 MG, QD
     Route: 042
     Dates: start: 20170209, end: 20170215
  19. HUMAN ALBUMIN [Concomitant]
     Active Substance: ALBUMIN HUMAN
     Indication: BLOOD ALBUMIN DECREASED
     Dosage: 50 ML, QD
     Route: 042
     Dates: start: 20170214, end: 20170215
  20. BASILIXIMAB [Suspect]
     Active Substance: BASILIXIMAB
     Indication: RENAL TRANSPLANT
     Dosage: 20 MG, QD
     Route: 065
     Dates: start: 20170207, end: 20170208
  21. PREDNISONE. [Suspect]
     Active Substance: PREDNISONE
     Indication: IMMUNOSUPPRESSANT DRUG THERAPY
     Dosage: 50 MG, QD
     Route: 065
     Dates: start: 20170211, end: 20170211
  22. METOPROLOL SUCCINATE. [Concomitant]
     Active Substance: METOPROLOL SUCCINATE
     Indication: HYPERTENSION
     Dosage: 47.5 MG, QD
     Route: 042
     Dates: start: 20170209, end: 20170228
  23. PAPAVERINE [Concomitant]
     Active Substance: PAPAVERINE
     Indication: PROPHYLAXIS
     Dosage: 60 MG, QD
     Route: 042
     Dates: start: 20170207, end: 20170207
  24. DEZOCINE [Concomitant]
     Active Substance: DEZOCINE
     Indication: WOUND COMPLICATION
     Dosage: 5 MG, BID
     Route: 042
     Dates: start: 20170214, end: 20170214

REACTIONS (8)
  - Haemoglobin decreased [Unknown]
  - Urethral pain [Recovered/Resolved]
  - Bilirubin conjugated increased [Unknown]
  - Pancreatitis acute [Recovered/Resolved]
  - Lymphocyte count decreased [Unknown]
  - Neutrophil count increased [Unknown]
  - Blood urea increased [Unknown]
  - White blood cell count increased [Unknown]

NARRATIVE: CASE EVENT DATE: 20170209
